FAERS Safety Report 5535090-6 (Version None)
Quarter: 2007Q4

REPORT INFORMATION
  Report Type: 
  Country: None (occurrence: None)
  Receive Date: 20071203
  Receipt Date: 20071116
  Transmission Date: 20080405
  Serious: Yes (Hospitalization)
  Sender: FDA-Public Use
  Company Number: 2007002261

PATIENT
  Age: 62 Year
  Sex: Female

DRUGS (18)
  1. ERLOTINIB (ERLOTINIB HCL) (TABLET) (ERLOTINIB HCL) [Suspect]
     Indication: NON-SMALL CELL LUNG CANCER
     Dosage: (150 MG, QD), ORAL
     Route: 048
     Dates: start: 20070308, end: 20070503
  2. PIOGLITAZONE HCL [Concomitant]
  3. RABEPRAZOLE SODIUM [Concomitant]
  4. TRAZODONE HCL [Concomitant]
  5. LEVOTHYROXINE SODIUM [Concomitant]
  6. PAROXETINE HCL [Concomitant]
  7. EPREX [Concomitant]
  8. CIPROFLOXACIN [Concomitant]
  9. LOPERAMIDE [Concomitant]
  10. PERCOCET [Concomitant]
  11. ANCEF [Concomitant]
  12. METRONIDAZOLE [Concomitant]
  13. CEPHALEXIN [Concomitant]
  14. ACETAMINOPHEN [Concomitant]
  15. COMBIVENT [Concomitant]
  16. FENTANYL [Concomitant]
  17. COLACE (DOCUSATE SODIUM) [Concomitant]
  18. ATIVAN [Concomitant]

REACTIONS (5)
  - CONFUSIONAL STATE [None]
  - DIARRHOEA [None]
  - DISEASE PROGRESSION [None]
  - HYPOTENSION [None]
  - SOMNOLENCE [None]
